FAERS Safety Report 9228481 (Version 3)
Quarter: 2013Q4

REPORT INFORMATION
  Report Type: Report from Study
  Country: FR (occurrence: FR)
  Receive Date: 20130412
  Receipt Date: 20131002
  Transmission Date: 20140711
  Serious: Yes (Hospitalization, Other)
  Sender: FDA-Public Use
  Company Number: FR-UCBSA-072636

PATIENT
  Age: 76 Year
  Sex: Male
  Weight: 90 kg

DRUGS (6)
  1. CIMZIA [Suspect]
     Indication: RHEUMATOID ARTHRITIS
     Route: 058
     Dates: start: 20121020, end: 20130531
  2. CIMZIA [Suspect]
     Indication: RHEUMATOID ARTHRITIS
     Dosage: 400 MG EVERY TWO WEEKS THEN 200 MG EVERY TWO WEEKS
     Route: 058
     Dates: start: 20120817, end: 20120920
  3. IMETH [Concomitant]
     Indication: RHEUMATOID ARTHRITIS
     Route: 048
     Dates: start: 201111
  4. CORTANCYL [Concomitant]
     Indication: RHEUMATOID ARTHRITIS
     Route: 048
     Dates: start: 20111120
  5. CORTANCYL [Concomitant]
     Indication: RHEUMATOID ARTHRITIS
     Route: 048
     Dates: start: 201211, end: 20130813
  6. SPECIAFORLDINE [Concomitant]
     Indication: RHEUMATOID ARTHRITIS
     Route: 048
     Dates: start: 201111

REACTIONS (4)
  - Psoriasis [Recovered/Resolved]
  - Herpes zoster [Recovered/Resolved]
  - Pleuropericarditis [Recovered/Resolved]
  - Inappropriate schedule of drug administration [Unknown]
